FAERS Safety Report 5008105-1 (Version None)
Quarter: 2006Q2

REPORT INFORMATION
  Report Type: 
  Country: None (occurrence: None)
  Receive Date: 20060404
  Receipt Date: 20050705
  Transmission Date: 20061013
  Serious: Yes (Other)
  Sender: FDA-Public Use
  Company Number: 2005097946

PATIENT
  Age: 6 Year
  Sex: Male
  Weight: 49.8957 kg

DRUGS (6)
  1. GEODON [Suspect]
     Indication: ASPERGER'S DISORDER
     Dosage: ORAL
     Route: 048
     Dates: start: 20050616
  2. GEODON [Suspect]
     Indication: ATTENTION DEFICIT/HYPERACTIVITY DISORDER
     Dosage: ORAL
     Route: 048
     Dates: start: 20050616
  3. GEODON [Suspect]
     Indication: BIPOLAR DISORDER
     Dosage: ORAL
     Route: 048
     Dates: start: 20050616
  4. ADDERALL 10 [Suspect]
     Indication: ILL-DEFINED DISORDER
     Dosage: ORAL
     Route: 048
     Dates: start: 20050101, end: 20050702
  5. OXCARBAZEPINE [Suspect]
     Indication: ILL-DEFINED DISORDER
  6. ZOLOFT [Concomitant]

REACTIONS (8)
  - ANOREXIA [None]
  - BLOOD PRESSURE INCREASED [None]
  - BODY TEMPERATURE DECREASED [None]
  - CHILLS [None]
  - HEART RATE INCREASED [None]
  - HYPERHIDROSIS [None]
  - PYREXIA [None]
  - SOMNOLENCE [None]
